FAERS Safety Report 6374448-2 (Version None)
Quarter: 2009Q3

REPORT INFORMATION
  Report Type: 
  Country: None (occurrence: None)
  Receive Date: 20090924
  Receipt Date: 20090910
  Transmission Date: 20100115
  Serious: Yes (Death)
  Sender: FDA-Public Use
  Company Number: CZ-PFIZER INC-2009263097

PATIENT

DRUGS (3)
  1. CHAMPIX [Suspect]
     Indication: SMOKING CESSATION THERAPY
     Dosage: 1 MG, 2X/DAY
  2. ARIMIDEX [Concomitant]
  3. GINKGO BILOBA EXTRACT [Concomitant]

REACTIONS (2)
  - DEPRESSION [None]
  - SUDDEN DEATH [None]
